FAERS Safety Report 5239516-7 (Version None)
Quarter: 2007Q1

REPORT INFORMATION
  Report Type: 
  Country: None (occurrence: None)
  Receive Date: 20070212
  Receipt Date: 20070129
  Transmission Date: 20070707
  Serious: Yes (Hospitalization)
  Sender: FDA-Public Use
  Company Number: SP-2007-003437

PATIENT
  Age: 40 Year
  Sex: Male

DRUGS (5)
  1. COOLMETEC (OLMESARTAN MEDOXOMIL + HCTZ) [Suspect]
     Indication: HYPERTENSION
     Dates: start: 20061123, end: 20061216
  2. TEMESTA [Concomitant]
  3. DOGMATIL [Concomitant]
  4. ANAFRANYL [Concomitant]
  5. NOCTAMIDE [Concomitant]

REACTIONS (5)
  - DIZZINESS [None]
  - HYPERHIDROSIS [None]
  - MYALGIA [None]
  - NAUSEA [None]
  - PALLOR [None]
